FAERS Safety Report 6963966-1 (Version None)
Quarter: 2010Q3

REPORT INFORMATION
  Report Type: 
  Country: None (occurrence: None)
  Receive Date: 20100902
  Receipt Date: 20100902
  Transmission Date: 20110219
  Serious: Yes (Other)
  Sender: FDA-Public Use
  Company Number: None

PATIENT
  Age: 59 Year
  Sex: Female
  Weight: 48.5349 kg

DRUGS (1)
  1. ELMIRON [Suspect]
     Dosage: STARTED 2 CAP 2 X DAY CHANGED 1 CAP 2 X DAY
     Dates: start: 20100603, end: 20100816

REACTIONS (3)
  - DRY SKIN [None]
  - HYPERAESTHESIA [None]
  - SKIN CHAPPED [None]
